FAERS Safety Report 10902970 (Version 1)
Quarter: 2015Q1

REPORT INFORMATION
  Report Type: Spontaneous
  Country: US (occurrence: CA)
  Receive Date: 20150310
  Receipt Date: 20150310
  Transmission Date: 20150721
  Serious: Yes (Other)
  Sender: FDA-Public Use
  Company Number: CA-FRI-1000075116

PATIENT
  Age: 57 Year
  Sex: Female
  Weight: 54 kg

DRUGS (12)
  1. ASPIRIN. [Concomitant]
     Active Substance: ASPIRIN
  2. RATIO OXYCOCET [Concomitant]
  3. ASCORBIC ACID. [Concomitant]
     Active Substance: ASCORBIC ACID
  4. PRISTIQ EXTENDED RELEASE [Concomitant]
     Active Substance: DESVENLAFAXINE SUCCINATE
  5. TRAZODONE [Concomitant]
     Active Substance: TRAZODONE HYDROCHLORIDE
  6. SAPHRIS [Suspect]
     Active Substance: ASENAPINE MALEATE
     Indication: DEPRESSION
     Dosage: 5 MG
     Route: 060
  7. CLONAZEPAM. [Concomitant]
     Active Substance: CLONAZEPAM
  8. CORGARD [Concomitant]
     Active Substance: NADOLOL
  9. TEMAZEPAM. [Concomitant]
     Active Substance: TEMAZEPAM
  10. VITAMIN D [Concomitant]
     Active Substance: CHOLECALCIFEROL
  11. STRESSTABS [Concomitant]
  12. ESTRACE [Concomitant]
     Active Substance: ESTRADIOL

REACTIONS (8)
  - Depression [Unknown]
  - Euphoric mood [Unknown]
  - Rash [Unknown]
  - Depressed mood [Unknown]
  - Abnormal behaviour [Unknown]
  - Psychotic disorder [Unknown]
  - Intentional self-injury [Unknown]
  - Suicidal ideation [Unknown]
